FAERS Safety Report 17551359 (Version 1)
Quarter: 2020Q1

REPORT INFORMATION
  Report Type: Spontaneous
  Country: US (occurrence: US)
  Receive Date: 20200317
  Receipt Date: 20200317
  Transmission Date: 20200409
  Serious: Yes (Other)
  Sender: FDA-Public Use
  Company Number: None

PATIENT
  Age: 9 Month
  Sex: Male

DRUGS (1)
  1. ACTHAR [Suspect]
     Active Substance: CORTICOTROPIN
     Indication: INFANTILE SPASMS
     Route: 030
     Dates: start: 20190404, end: 20190410

REACTIONS (2)
  - Infantile spasms [None]
  - Respiratory arrest [None]

NARRATIVE: CASE EVENT DATE: 20190410
